FAERS Safety Report 9155155 (Version 2)
Quarter: 2013Q1

REPORT INFORMATION
  Report Type: Spontaneous
  Country: AT (occurrence: AT)
  Receive Date: 20130311
  Receipt Date: 20130314
  Transmission Date: 20140127
  Serious: Yes (Death)
  Sender: FDA-Public Use
  Company Number: AT-ROCHE-1198305

PATIENT
  Age: 74 Year
  Sex: Female
  Weight: 64 kg

DRUGS (9)
  1. AVASTIN [Suspect]
     Indication: AGE-RELATED MACULAR DEGENERATION
     Route: 065
     Dates: start: 2011, end: 20110621
  2. AVASTIN [Suspect]
     Indication: OFF LABEL USE
     Route: 065
     Dates: start: 20111111
  3. AVASTIN [Suspect]
     Route: 065
     Dates: start: 2012
  4. WELLBUTRIN [Concomitant]
     Indication: DEPRESSION
     Dosage: PROLONGED RELEASE TABLET
     Route: 048
     Dates: end: 20130210
  5. NOVALGIN [Concomitant]
     Indication: PAIN
     Route: 048
     Dates: end: 20130210
  6. HYDROMORPHONE HYDROCHLORIDE [Concomitant]
     Indication: PAIN
     Route: 048
     Dates: end: 20130210
  7. MIRTEL [Concomitant]
     Indication: DEPRESSION
     Route: 065
     Dates: end: 20130210
  8. BETASERC [Concomitant]
     Indication: DIZZINESS
  9. PRAM [Concomitant]
     Route: 065

REACTIONS (1)
  - Cerebral haemorrhage [Fatal]
